FAERS Safety Report 7735908-2 (Version None)
Quarter: 2011Q3

REPORT INFORMATION
  Report Type: 
  Country: None (occurrence: None)
  Receive Date: 20110908
  Receipt Date: 20110830
  Transmission Date: 20111222
  Serious: No
  Sender: FDA-Public Use
  Company Number: US-BIOGENIDEC-2011BI033011

PATIENT
  Sex: Female

DRUGS (2)
  1. AVONEX [Suspect]
     Indication: MULTIPLE SCLEROSIS
     Route: 030
     Dates: start: 20061117
  2. EXCEDRIN (MIGRAINE) [Concomitant]
     Indication: PREMEDICATION

REACTIONS (4)
  - URINARY TRACT INFECTION [None]
  - INJECTION SITE ERYTHEMA [None]
  - MEMORY IMPAIRMENT [None]
  - INFLUENZA LIKE ILLNESS [None]
